FAERS Safety Report 14818750 (Version 2)
Quarter: 2018Q2

REPORT INFORMATION
  Report Type: Spontaneous
  Country: DE (occurrence: DE)
  Receive Date: 20180427
  Receipt Date: 20180430
  Transmission Date: 20180711
  Serious: Yes (Hospitalization)
  Sender: FDA-Public Use
  Company Number: DE-SUN PHARMACEUTICAL INDUSTRIES LTD-2018RR-171158

PATIENT
  Age: 67 Year
  Sex: Male
  Weight: 87 kg

DRUGS (13)
  1. FOLINIC ACID [Concomitant]
     Active Substance: LEUCOVORIN
     Indication: COLORECTAL CANCER
     Dosage: DAILY DOSE: 1040 MG MILLGRAM(S) EVERY WEEKS
     Route: 042
     Dates: start: 20160323, end: 20160706
  2. DEXAMETHASONE. [Concomitant]
     Active Substance: DEXAMETHASONE
     Indication: PRODUCT USED FOR UNKNOWN INDICATION
     Dosage: 8 MG, UNK
     Route: 048
     Dates: start: 20160317
  3. MCP [Concomitant]
     Active Substance: METOCLOPRAMIDE HYDROCHLORIDE
     Indication: PRODUCT USED FOR UNKNOWN INDICATION
     Dosage: DAILY DOSE: 30 MG MILLGRAM(S) EVERY DAYS
     Route: 048
     Dates: start: 2016
  4. 5-FLUOROURACIL [Suspect]
     Active Substance: FLUOROURACIL
     Indication: PRODUCT USED FOR UNKNOWN INDICATION
     Dosage: DAILY DOSE: 4150 MG MILLGRAM(S) EVERY WEEKS
     Route: 042
     Dates: end: 20160706
  5. OMEPRAZOLE. [Concomitant]
     Active Substance: OMEPRAZOLE
     Indication: PRODUCT USED FOR UNKNOWN INDICATION
     Dosage: DAILY DOSE: 20 MG MILLGRAM(S) EVERY DAYS
     Route: 048
     Dates: start: 2016
  6. OXALIPLATIN. [Suspect]
     Active Substance: OXALIPLATIN
     Dosage: DAILY DOSE: 104 MG MILLGRAM(S) EVERY WEEKS
     Route: 042
     Dates: end: 20160706
  7. OXALIPLATIN. [Suspect]
     Active Substance: OXALIPLATIN
     Indication: COLORECTAL CANCER
     Dosage: DATE OF LAST DOSE PRIOR TO PROTEINURIA: 15/JUN/2016 DATE OF LAST DOSE PRIOR TO ATRIAL FIBRILLATION
     Route: 042
     Dates: start: 20160323, end: 20160615
  8. LOPERAMID [Concomitant]
     Active Substance: LOPERAMIDE
     Indication: DIARRHOEA
     Dosage: 2 MG, UNK
     Route: 048
     Dates: start: 20160622
  9. FOLINIC ACID [Concomitant]
     Active Substance: LEUCOVORIN
     Dosage: DAILY DOSE: 1040 MG MILLGRAM(S) EVERY WEEKS
     Route: 042
     Dates: start: 20160615, end: 20160615
  10. FOLINIC ACID [Concomitant]
     Active Substance: LEUCOVORIN
     Dosage: DAILY DOSE: 1040 MG MILLGRAM(S) EVERY WEEKS
     Route: 042
     Dates: start: 20160706, end: 20160706
  11. PANTOPRAZOL [Concomitant]
     Active Substance: PANTOPRAZOLE SODIUM
     Indication: PRODUCT USED FOR UNKNOWN INDICATION
     Dosage: 40 MG, UNK
     Route: 048
     Dates: start: 201706
  12. 5-FLUOROURACIL [Suspect]
     Active Substance: FLUOROURACIL
     Indication: COLORECTAL CANCER
     Dosage: DATE OF LAST DOSE PRIOR TO PROTEINURIA: 15/JUN/2016 DATE OF LAST DOSE PRIOR TO ATRIAL FIBRILLATION:
     Route: 042
     Dates: start: 20160323, end: 20160615
  13. AVASTIN [Suspect]
     Active Substance: BEVACIZUMAB
     Indication: COLORECTAL CANCER METASTATIC
     Dosage: DATE OF LAST DOSE PRIOR TO SAE WAS ON 22/JUN/2016 AND DISCONTINUED.
     Route: 042
     Dates: start: 20160420, end: 20160622

REACTIONS (2)
  - Atrial fibrillation [Recovered/Resolved]
  - Proteinuria [Unknown]

NARRATIVE: CASE EVENT DATE: 20160622
